FAERS Safety Report 16008007 (Version 1)
Quarter: 2019Q1

REPORT INFORMATION
  Report Type: Spontaneous
  Country: CR (occurrence: CR)
  Receive Date: 20190226
  Receipt Date: 20190226
  Transmission Date: 20190418
  Serious: Yes (Other)
  Sender: FDA-Public Use
  Company Number: CR-BAYER-2019-036595

PATIENT
  Age: 36 Year
  Sex: Female

DRUGS (1)
  1. QLAIRA [Suspect]
     Active Substance: DIENOGEST\ESTRADIOL VALERATE
     Indication: ENDOMETRIOSIS
     Dosage: UNK
     Route: 048

REACTIONS (3)
  - Fibroma [Unknown]
  - Off label use [None]
  - Product use in unapproved indication [None]
